FAERS Safety Report 6637612-0 (Version None)
Quarter: 2010Q1

REPORT INFORMATION
  Report Type: 
  Country: None (occurrence: None)
  Receive Date: 20100312
  Receipt Date: 20100304
  Transmission Date: 20100710
  Serious: Yes (Other)
  Sender: FDA-Public Use
  Company Number: 1000012370

PATIENT

DRUGS (1)
  1. NAMENDA [Suspect]

REACTIONS (2)
  - CATATONIA [None]
  - PSYCHOTIC DISORDER [None]
